FAERS Safety Report 10207773 (Version 1)
Quarter: 2014Q2

REPORT INFORMATION
  Report Type: Spontaneous
  Country: US (occurrence: None)
  Receive Date: 20140528
  Receipt Date: 20140528
  Transmission Date: 20141212
  Serious: Yes (Other)
  Sender: FDA-Public Use
  Company Number: None

PATIENT
  Age: 53 Year
  Sex: Female

DRUGS (2)
  1. GENERIC LEXAPRO [Suspect]
     Indication: AFFECTIVE DISORDER
     Route: 048
  2. GENERIC LEXAPRO [Suspect]
     Indication: PANIC DISORDER WITHOUT AGORAPHOBIA
     Route: 048

REACTIONS (2)
  - Product substitution issue [None]
  - Condition aggravated [None]
